FAERS Safety Report 4358344-8 (Version None)
Quarter: 2004Q2

REPORT INFORMATION
  Report Type: 
  Country: None (occurrence: None)
  Receive Date: 20040514
  Receipt Date: 20030425
  Transmission Date: 20050107
  Serious: Yes (Other)
  Sender: FDA-Public Use
  Company Number: PHRM2003FR01422

PATIENT
  Age: 37 Year
  Sex: Female
  Weight: 55 kg

DRUGS (1)
  1. GLEEVEC [Suspect]
     Dosage: FOETAL DRUG EXPOSURE VIA FATHER

REACTIONS (6)
  - ABORTION INDUCED [None]
  - CONGENITAL ANOMALY [None]
  - DRUG EXPOSURE DURING PREGNANCY [None]
  - FOETAL GROWTH RETARDATION [None]
  - TRANSMISSION OF DRUG VIA SEMEN [None]
  - UNINTENDED PREGNANCY [None]
